FAERS Safety Report 4695170-4 (Version None)
Quarter: 2005Q2

REPORT INFORMATION
  Report Type: 
  Country: None (occurrence: None)
  Receive Date: 20050617
  Receipt Date: 20050614
  Transmission Date: 20051028
  Serious: Yes (Hospitalization, Other)
  Sender: FDA-Public Use
  Company Number: GBWYE645005MAY05

PATIENT
  Age: 49 Year
  Sex: Female

DRUGS (2)
  1. EFFEXOR [Suspect]
     Indication: DEPRESSION
     Dosage: 150 MG 1X PER 1 DAY ORAL
     Route: 048
     Dates: start: 19980101
  2. EFFEXOR [Suspect]
     Indication: DYSPHORIA
     Dosage: 150 MG 1X PER 1 DAY ORAL
     Route: 048
     Dates: start: 19980101

REACTIONS (1)
  - TRANSIENT ISCHAEMIC ATTACK [None]
